FAERS Safety Report 9437601 (Version 1)
Quarter: 2013Q3

REPORT INFORMATION
  Report Type: Report from Study
  Country: MX (occurrence: MX)
  Receive Date: 20130802
  Receipt Date: 20130802
  Transmission Date: 20140515
  Serious: Yes (Hospitalization)
  Sender: FDA-Public Use
  Company Number: MX-ROCHE-1254336

PATIENT
  Age: 40 Year
  Sex: Female

DRUGS (3)
  1. OMALIZUMAB [Suspect]
     Indication: ASTHMA
     Route: 042
     Dates: start: 2009, end: 201105
  2. OMALIZUMAB [Suspect]
     Route: 042
     Dates: start: 2011
  3. IBUPROFEN [Suspect]
     Indication: PRODUCT USED FOR UNKNOWN INDICATION
     Route: 065

REACTIONS (4)
  - Cardio-respiratory arrest [Recovered/Resolved]
  - Anaphylactic shock [Recovered/Resolved]
  - Exposure during pregnancy [Unknown]
  - Incorrect route of drug administration [Unknown]
